FAERS Safety Report 5925718-0 (Version None)
Quarter: 2008Q4

REPORT INFORMATION
  Report Type: 
  Country: None (occurrence: None)
  Receive Date: 20081021
  Receipt Date: 20081013
  Transmission Date: 20090506
  Serious: Yes (Hospitalization)
  Sender: FDA-Public Use
  Company Number: PHHO2008NL04860

PATIENT
  Sex: Female
  Weight: 79 kg

DRUGS (3)
  1. STI571/CGP57148B T35717+CAPS [Suspect]
     Indication: CHRONIC MYELOID LEUKAEMIA
     Dosage: 800 MG, UNK
     Route: 048
     Dates: start: 20040422, end: 20080508
  2. ATENOLOL [Concomitant]
     Indication: HYPERTENSION
     Dosage: UNK
     Dates: end: 20080228
  3. RANITIDINE [Concomitant]
     Indication: REFLUX OESOPHAGITIS
     Dosage: UNK

REACTIONS (4)
  - ASCITES [None]
  - HEPATIC CYST RUPTURED [None]
  - PARACENTESIS [None]
  - PORTAL HYPERTENSION [None]
